FAERS Safety Report 23831232 (Version 1)
Quarter: 2024Q2

REPORT INFORMATION
  Report Type: Spontaneous
  Country: US (occurrence: US)
  Receive Date: 20240508
  Receipt Date: 20240508
  Transmission Date: 20240716
  Serious: Yes (Death, Other)
  Sender: FDA-Public Use
  Company Number: US-BRISTOL-MYERS SQUIBB COMPANY-2024-071357

PATIENT
  Age: 62 Year
  Sex: Female

DRUGS (5)
  1. OPDIVO [Suspect]
     Active Substance: NIVOLUMAB
     Indication: Malignant connective tissue neoplasm
     Dosage: DOSE : UNAVAILABLE;     FREQ : UNAVAILABLE
  2. OPDIVO [Suspect]
     Active Substance: NIVOLUMAB
     Indication: Soft tissue sarcoma
  3. OPDIVO [Suspect]
     Active Substance: NIVOLUMAB
     Indication: Cervix carcinoma
  4. PACLITAXEL [Concomitant]
     Active Substance: PACLITAXEL
     Indication: Product used for unknown indication
     Dosage: DOSE : UNAVAILABLE;     FREQ : UNAVAILABLE
     Dates: start: 2022
  5. CABOMETYX [Concomitant]
     Active Substance: CABOZANTINIB S-MALATE
     Indication: Product used for unknown indication

REACTIONS (2)
  - Death [Fatal]
  - Off label use [Unknown]
